FAERS Safety Report 10003909 (Version 2)
Quarter: 2014Q1

REPORT INFORMATION
  Report Type: Spontaneous
  Country: IT (occurrence: IT)
  Receive Date: 20140312
  Receipt Date: 20140312
  Transmission Date: 20141002
  Serious: Yes (Life-Threatening)
  Sender: FDA-Public Use
  Company Number: IT-ASTRAZENECA-2014SE14191

PATIENT
  Age: 73 Year
  Sex: Male

DRUGS (4)
  1. OMEPRAZEN [Suspect]
     Indication: HAEMORRHAGE PROPHYLAXIS
     Route: 048
     Dates: start: 20140210
  2. OMEPRAZEN [Suspect]
     Indication: HAEMORRHAGE PROPHYLAXIS
     Route: 048
  3. OMEPRAZEN [Suspect]
     Indication: HAEMORRHAGE PROPHYLAXIS
     Route: 048
  4. LARGACTIL [Concomitant]

REACTIONS (2)
  - Febrile convulsion [Recovered/Resolved]
  - Helicobacter infection [Unknown]
